FAERS Safety Report 5080111-0 (Version None)
Quarter: 2006Q3

REPORT INFORMATION
  Report Type: 
  Country: None (occurrence: None)
  Receive Date: 20060810
  Receipt Date: 20060801
  Transmission Date: 20061208
  Serious: Yes (Other)
  Sender: FDA-Public Use
  Company Number: 20060858592

PATIENT
  Age: 58 Year
  Sex: Male
  Weight: 79.3795 kg

DRUGS (6)
  1. LIPITOR [Suspect]
     Indication: HYPERLIPIDAEMIA
     Dosage: 10 MG (10 MG, 1 IN 1 D), ORAL
     Route: 048
  2. LISINOPRIL W/HYDROCHLOROTHIAZIDE (HYDROCHLOROTHIAZIDE, LISINOPRIL) [Concomitant]
  3. GLYBURIDE [Concomitant]
  4. FOSAMAX [Concomitant]
  5. ETODOLAC [Concomitant]
  6. CIMETIDINE [Concomitant]

REACTIONS (3)
  - AMNESIA [None]
  - DIABETES MELLITUS [None]
  - SLEEP DISORDER [None]
